FAERS Safety Report 7262330-8 (Version None)
Quarter: 2011Q1

REPORT INFORMATION
  Report Type: 
  Country: None (occurrence: None)
  Receive Date: 20110130
  Receipt Date: 20101128
  Transmission Date: 20110831
  Serious: No
  Sender: FDA-Public Use
  Company Number: US-ABBOTT-10P-163-0688100-00

PATIENT
  Sex: Female
  Weight: 83.536 kg

DRUGS (10)
  1. HUMIRA [Suspect]
     Indication: RHEUMATOID ARTHRITIS
     Dates: start: 20090301, end: 20101126
  2. METHOTREXATE [Concomitant]
     Indication: PRODUCT USED FOR UNKNOWN INDICATION
  3. VIT D [Concomitant]
     Indication: PRODUCT USED FOR UNKNOWN INDICATION
  4. CELEXA [Concomitant]
     Indication: STRESS
     Dosage: 1/2 A PILL A DAY
  5. M.V.I. [Concomitant]
     Indication: PRODUCT USED FOR UNKNOWN INDICATION
  6. MAXZIDE [Concomitant]
     Indication: OEDEMA PERIPHERAL
  7. TRICOR [Concomitant]
     Indication: BLOOD CHOLESTEROL
  8. FOLIC ACID [Concomitant]
     Indication: PRODUCT USED FOR UNKNOWN INDICATION
  9. FISH OIL [Concomitant]
     Indication: PRODUCT USED FOR UNKNOWN INDICATION
  10. NEXIUM [Concomitant]
     Indication: GASTROOESOPHAGEAL REFLUX DISEASE
     Dosage: PRN

REACTIONS (13)
  - LISTLESS [None]
  - INFLUENZA LIKE ILLNESS [None]
  - PYREXIA [None]
  - PAIN [None]
  - HERPES ZOSTER [None]
  - BLOOD SODIUM DECREASED [None]
  - CYSTITIS [None]
  - ASTHENIA [None]
  - BLOOD POTASSIUM DECREASED [None]
  - FATIGUE [None]
  - WHEEZING [None]
  - OROPHARYNGEAL PAIN [None]
  - INFECTION [None]
